FAERS Safety Report 5367008-3 (Version None)
Quarter: 2007Q2

REPORT INFORMATION
  Report Type: 
  Country: None (occurrence: None)
  Receive Date: 20070622
  Receipt Date: 20070611
  Transmission Date: 20071010
  Serious: Yes (Hospitalization)
  Sender: FDA-Public Use
  Company Number: US-AVENTIS-200712909EU

PATIENT
  Age: 28 Year
  Sex: Female
  Weight: 65.8 kg

DRUGS (4)
  1. GAVISCON                           /01266001/ [Suspect]
     Dosage: DOSE: UNKNOWN DOSAGE
  2. PAROXETINE HYDROCHLORIDE [Suspect]
     Indication: AGORAPHOBIA
     Route: 048
     Dates: start: 20050307
  3. PAROXETINE HYDROCHLORIDE [Suspect]
     Route: 048
     Dates: start: 20050307
  4. IRON PREPARATIONS [Suspect]
     Dosage: DOSE: UNK

REACTIONS (5)
  - ANAEMIA [None]
  - DRUG EXPOSURE DURING PREGNANCY [None]
  - PREMATURE BABY [None]
  - RED BLOOD CELLS URINE POSITIVE [None]
  - WHITE BLOOD CELLS URINE [None]
